FAERS Safety Report 4704368-8 (Version None)
Quarter: 2005Q2

REPORT INFORMATION
  Report Type: 
  Country: None (occurrence: None)
  Receive Date: 20050628
  Receipt Date: 20050621
  Transmission Date: 20051028
  Serious: Yes (Other)
  Sender: FDA-Public Use
  Company Number: 200510591BVD

PATIENT
  Age: 61 Year
  Sex: Male
  Weight: 79 kg

DRUGS (4)
  1. AVELOX [Suspect]
     Indication: BRONCHITIS
     Dosage: 400 MG, TOTAL DAILY, ORAL
     Route: 048
     Dates: start: 20050428
  2. AMINOPHYLLIN [Concomitant]
  3. SOLU-DECORTIN [Concomitant]
  4. FENISTIL [Concomitant]

REACTIONS (7)
  - ARRHYTHMIA [None]
  - BLOOD PRESSURE DIASTOLIC INCREASED [None]
  - HYPERSENSITIVITY [None]
  - NAUSEA [None]
  - PALPITATIONS [None]
  - TACHYCARDIA [None]
  - VERTIGO [None]
